FAERS Safety Report 22219785 (Version 1)
Quarter: 2023Q2

REPORT INFORMATION
  Report Type: Spontaneous
  Country: US (occurrence: None)
  Receive Date: 20230414
  Receipt Date: 20230414
  Transmission Date: 20230722
  Serious: Yes (Death)
  Sender: FDA-Public Use
  Company Number: None

PATIENT
  Age: 68 Year
  Sex: Female
  Weight: 75.3 kg

DRUGS (22)
  1. PIQRAY [Suspect]
     Active Substance: ALPELISIB
     Indication: Breast cancer female
     Dosage: FREQUENCY : DAILY;?
     Route: 048
     Dates: start: 202302, end: 20230320
  2. ACETAMINOPHEN [Concomitant]
  3. ALBUTEROL SULFATE [Concomitant]
     Active Substance: ALBUTEROL SULFATE
  4. ALUM + MAG HYDROXIDE-SIMETH [Concomitant]
  5. AMLODIPINE [Concomitant]
  6. BALSAM PERU0CASTOR OIL [Concomitant]
  7. BISACODYL [Concomitant]
     Active Substance: BISACODYL
  8. BUDESONIDE [Concomitant]
     Active Substance: BUDESONIDE
  9. BUMETANIDE [Concomitant]
     Active Substance: BUMETANIDE
  10. CYANOCOBALAMIN [Concomitant]
  11. DEXAMETHASONE [Concomitant]
  12. DOSCUATE SODIUM [Concomitant]
  13. EXOXAPARIN [Concomitant]
  14. FOLIC ACID [Concomitant]
  15. NORCO [Concomitant]
  16. ALBUTEROL\IPRATROPIUM [Concomitant]
     Active Substance: ALBUTEROL\IPRATROPIUM
  17. LETROZOLE [Concomitant]
  18. LOSARTAN [Concomitant]
  19. METOPROLOL [Concomitant]
  20. POLYETHYLENE [Concomitant]
  21. SENNOSIDES [Concomitant]
     Active Substance: SENNOSIDES
  22. VITAMIN D [Concomitant]
     Active Substance: VITAMIN D NOS

REACTIONS (1)
  - Death [None]

NARRATIVE: CASE EVENT DATE: 20230320
